FAERS Safety Report 6429166-9 (Version None)
Quarter: 2009Q4

REPORT INFORMATION
  Report Type: 
  Country: None (occurrence: None)
  Receive Date: 20091102
  Receipt Date: 20091029
  Transmission Date: 20100525
  Serious: No
  Sender: FDA-Public Use
  Company Number: 20097334

PATIENT
  Sex: Male

DRUGS (1)
  1. LIORESAL [Suspect]
     Indication: MUSCLE SPASTICITY
     Dosage: 200, DAILY, INTRATHECAL
     Route: 037

REACTIONS (5)
  - DYSKINESIA [None]
  - HYPERTONIA [None]
  - MUSCLE SPASTICITY [None]
  - OVERDOSE [None]
  - RESPIRATORY DEPRESSION [None]
